FAERS Safety Report 6899997-X (Version None)
Quarter: 2010Q3

REPORT INFORMATION
  Report Type: 
  Country: None (occurrence: None)
  Receive Date: 20100803
  Receipt Date: 20100728
  Transmission Date: 20110219
  Serious: Yes (Other)
  Sender: FDA-Public Use
  Company Number: JP-SANOFI-AVENTIS-2010SA044620

PATIENT

DRUGS (1)
  1. AMARYL [Suspect]
     Dosage: DOSAGE UNKNOWN
     Route: 048

REACTIONS (1)
  - STEVENS-JOHNSON SYNDROME [None]
